FAERS Safety Report 7829691-X (Version None)
Quarter: 2011Q4

REPORT INFORMATION
  Report Type: 
  Country: None (occurrence: None)
  Receive Date: 20111018
  Receipt Date: 20111003
  Transmission Date: 20120403
  Serious: Yes (Death)
  Sender: FDA-Public Use
  Company Number: TPA2011A05319

PATIENT
  Age: 95 Year
  Sex: Male
  Weight: 78.4723 kg

DRUGS (5)
  1. ACTOS [Suspect]
     Indication: DIABETES MELLITUS
     Dosage: 15 MG, 1 IN 1 D, PER ORAL
     Route: 048
     Dates: start: 20080101, end: 20110101
  2. MICARDIS HCT [Concomitant]
  3. PROCARDIA XL [Concomitant]
  4. PRILOSEC [Concomitant]
  5. OMEGA 3 FATTY ACID (FISH OIL) [Concomitant]

REACTIONS (1)
  - DEATH [None]
